FAERS Safety Report 8914845 (Version 5)
Quarter: 2016Q3

REPORT INFORMATION
  Report Type: Report from Study
  Country: BR (occurrence: BR)
  Receive Date: 20121119
  Receipt Date: 20160728
  Transmission Date: 20161109
  Serious: Yes (Other)
  Sender: FDA-Public Use
  Company Number: BR-ROCHE-1154760

PATIENT
  Age: 79 Year
  Sex: Female
  Weight: 46 kg

DRUGS (13)
  1. ROSUVASTATIN. [Suspect]
     Active Substance: ROSUVASTATIN
     Indication: HIGH DENSITY LIPOPROTEIN ABNORMAL
     Route: 065
  2. METHOTREXATE. [Suspect]
     Active Substance: METHOTREXATE
     Indication: RHEUMATOID ARTHRITIS
     Route: 065
  3. TECNOMET [Concomitant]
     Active Substance: METHOTREXATE
     Route: 065
  4. MABTHERA [Suspect]
     Active Substance: RITUXIMAB
     Route: 042
     Dates: start: 2013
  5. ENDOFOLIN [Concomitant]
     Active Substance: FOLIC ACID
     Dosage: 1 TABLET 48HOURS AFTER OF METHOTREXATE USING
     Route: 065
  6. TECNOMET [Concomitant]
     Active Substance: METHOTREXATE
     Route: 065
  7. ACLASTA [Concomitant]
     Active Substance: ZOLEDRONIC ACID
     Dosage: 1 INFUSION ONCE YEARLY
     Route: 065
  8. MABTHERA [Suspect]
     Active Substance: RITUXIMAB
     Indication: RHEUMATOID ARTHRITIS
     Dosage: LAST DOSE: 31/JAN/2013
     Route: 042
     Dates: start: 20100201
  9. DEPURAN [Concomitant]
  10. FOLIC ACID. [Concomitant]
     Active Substance: FOLIC ACID
     Indication: RHEUMATOID ARTHRITIS
     Route: 065
  11. CRESTOR [Concomitant]
     Active Substance: ROSUVASTATIN CALCIUM
     Route: 065
  12. DONILA [Suspect]
     Active Substance: DONEPEZIL HYDROCHLORIDE
     Indication: AMNESIA
     Route: 065
  13. ESOMEPRAZOLE [Concomitant]
     Active Substance: ESOMEPRAZOLE

REACTIONS (10)
  - Fall [Unknown]
  - Pain [Unknown]
  - Joint swelling [Unknown]
  - Dementia Alzheimer^s type [Unknown]
  - Gastric disorder [Not Recovered/Not Resolved]
  - Influenza [Recovering/Resolving]
  - Humerus fracture [Unknown]
  - Vomiting [Unknown]
  - Vitamin D decreased [Unknown]
  - Amnesia [Unknown]

NARRATIVE: CASE EVENT DATE: 20120822
